FAERS Safety Report 5803905-X (Version None)
Quarter: 2008Q3

REPORT INFORMATION
  Report Type: 
  Country: None (occurrence: None)
  Receive Date: 20080703
  Receipt Date: 20080620
  Transmission Date: 20090109
  Serious: Yes (Death)
  Sender: FDA-Public Use
  Company Number: 2008001254

PATIENT
  Age: 67 Year
  Sex: Male

DRUGS (7)
  1. ERLOTINIB (ERLOTINIB) (TABLET) (ERLOTINIB) [Suspect]
     Indication: LUNG ADENOCARCINOMA
     Dosage: (150 MG, QD), ORAL
     Route: 048
     Dates: start: 20080129, end: 20080516
  2. MEDICON (DEXTROMETHORPHAN HYDROBROMIDE) [Concomitant]
  3. BIOFERMIN (BIOFERMIN) [Concomitant]
  4. GOODMIN [Concomitant]
  5. ADONA (CARBAZOCHROME SODIUM SULFONATE) [Concomitant]
  6. MUCOSOLVAN (AMBROXOL HYDROCHLORIDE) [Concomitant]
  7. ALLELOCK [Concomitant]

REACTIONS (1)
  - PNEUMONIA BACTERIAL [None]
